FAERS Safety Report 10796868 (Version 1)
Quarter: 2015Q1

REPORT INFORMATION
  Report Type: Report from Study
  Country: US (occurrence: US)
  Receive Date: 20150216
  Receipt Date: 20150216
  Transmission Date: 20150721
  Serious: No
  Sender: FDA-Public Use
  Company Number: US-ABBVIE-12P-163-0932803-00

PATIENT
  Age: 42 Year
  Sex: Female

DRUGS (3)
  1. AZATHIOPRINE. [Suspect]
     Active Substance: AZATHIOPRINE
     Indication: PRODUCT USED FOR UNKNOWN INDICATION
     Dosage: DAILY
  2. HUMIRA [Suspect]
     Active Substance: ADALIMUMAB
     Indication: CROHN^S DISEASE
     Dates: start: 2009
  3. AZATHIOPRINE. [Suspect]
     Active Substance: AZATHIOPRINE

REACTIONS (14)
  - Muscle spasms [Recovered/Resolved]
  - Pertussis [Recovered/Resolved]
  - Pain in extremity [Unknown]
  - Diarrhoea [Recovered/Resolved]
  - Diarrhoea [Unknown]
  - Wound [Unknown]
  - Hypersensitivity [Unknown]
  - Joint swelling [Unknown]
  - Drug ineffective [Not Recovered/Not Resolved]
  - Decreased appetite [Recovered/Resolved]
  - Blister [Unknown]
  - Rash [Unknown]
  - Pain [Recovered/Resolved]
  - Rash maculo-papular [Unknown]

NARRATIVE: CASE EVENT DATE: 2009
